FAERS Safety Report 14277360 (Version 1)
Quarter: 2017Q4

REPORT INFORMATION
  Report Type: Spontaneous
  Country: US (occurrence: US)
  Receive Date: 20171212
  Receipt Date: 20171212
  Transmission Date: 20180321
  Serious: Yes (Hospitalization, Other)
  Sender: FDA-Public Use
  Company Number: US-DRREDDYS-USA/USA/17/0094839

PATIENT
  Age: 8 Year
  Sex: Male

DRUGS (5)
  1. MYCOPHENOLATE MOFETIL. [Suspect]
     Active Substance: MYCOPHENOLATE MOFETIL
     Indication: IMMUNOSUPPRESSION
  2. PREDNISONE. [Suspect]
     Active Substance: PREDNISONE
     Indication: IMMUNOSUPPRESSION
  3. SIROLIMUS. [Suspect]
     Active Substance: SIROLIMUS
     Indication: IMMUNOSUPPRESSION
     Route: 065
  4. TACROLIMUS. [Suspect]
     Active Substance: TACROLIMUS
     Indication: IMMUNOSUPPRESSION
     Route: 061
  5. FLUCONAZOLE. [Suspect]
     Active Substance: FLUCONAZOLE
     Indication: PRODUCT USED FOR UNKNOWN INDICATION
     Route: 065

REACTIONS (15)
  - Hyperlipidaemia [Unknown]
  - Polyomavirus test positive [Unknown]
  - Blood creatine increased [Unknown]
  - Urinary tract infection [Unknown]
  - Acute kidney injury [Unknown]
  - Mouth ulceration [Unknown]
  - Oedema peripheral [Unknown]
  - Anticoagulant therapy [Unknown]
  - Nephropathy toxic [Unknown]
  - Transplant rejection [Unknown]
  - Dehydration [Unknown]
  - Neutropenia [Unknown]
  - Rash erythematous [Unknown]
  - Rhinovirus infection [Unknown]
  - Systemic infection [Unknown]
